FAERS Safety Report 9854471 (Version 2)
Quarter: 2014Q2

REPORT INFORMATION
  Report Type: Spontaneous
  Country: US (occurrence: US)
  Receive Date: 20140130
  Receipt Date: 20140414
  Transmission Date: 20141212
  Serious: No
  Sender: FDA-Public Use
  Company Number: US-BIOGENIDEC-2013BI086405

PATIENT
  Age: 61 Year
  Sex: Female

DRUGS (17)
  1. TECFIDERA [Suspect]
     Indication: MULTIPLE SCLEROSIS
     Route: 048
     Dates: start: 20130723
  2. TECFIDERA [Suspect]
     Indication: MULTIPLE SCLEROSIS
     Route: 048
  3. CENTRUM [Concomitant]
  4. LANTUS [Concomitant]
  5. METFORMIN HCL [Concomitant]
  6. DICYCLOMINE [Concomitant]
  7. NOVOLOG [Concomitant]
  8. LISINOPRIL [Concomitant]
  9. CRESTOR [Concomitant]
  10. KLOR-CON [Concomitant]
  11. LEVOTHYROXINE SODIUM [Concomitant]
  12. FERROUS SULFATE [Concomitant]
  13. ACIDOPHILUS [Concomitant]
  14. VITAMIN D [Concomitant]
  15. FISH OIL [Concomitant]
  16. ASPIRIN CHILDRENS [Concomitant]
  17. NIFEDIPINE ER [Concomitant]

REACTIONS (2)
  - Adverse event [Unknown]
  - Diarrhoea [Unknown]
